APPROVED DRUG PRODUCT: OXYCODONE HYDROCHLORIDE
Active Ingredient: OXYCODONE HYDROCHLORIDE
Strength: 30MG
Dosage Form/Route: TABLET;ORAL
Application: A077290 | Product #005
Applicant: NESHER PHARMACEUTICALS USA LLC
Approved: Dec 8, 2005 | RLD: No | RS: No | Type: DISCN